FAERS Safety Report 8989922 (Version 4)
Quarter: 2013Q2

REPORT INFORMATION
  Report Type: Report from Study
  Country: JP (occurrence: JP)
  Receive Date: 20121228
  Receipt Date: 20130417
  Transmission Date: 20140414
  Serious: Yes (Hospitalization)
  Sender: FDA-Public Use
  Company Number: JP-GLAXOSMITHKLINE-B0854963A

PATIENT
  Age: 62 Year
  Sex: Male

DRUGS (20)
  1. SAMTIREL [Suspect]
     Indication: PNEUMOCYSTIS JIROVECII PNEUMONIA
     Dosage: 750MG TWICE PER DAY
     Route: 048
     Dates: start: 20121022, end: 20121111
  2. WARFARIN [Suspect]
     Dosage: 1MG PER DAY
     Route: 048
     Dates: start: 20121022, end: 20121026
  3. FLORID [Suspect]
     Dosage: 1IUAX FOUR TIMES PER DAY
     Route: 048
     Dates: start: 20121022, end: 20121022
  4. GASTER [Concomitant]
     Dosage: 10MG TWICE PER DAY
     Route: 048
     Dates: start: 20121028
  5. TIGASON [Concomitant]
     Dosage: 25MG TWICE PER DAY
     Route: 048
     Dates: start: 20121022
  6. ENTOMOL [Concomitant]
     Dosage: 1G THREE TIMES PER DAY
     Route: 048
     Dates: start: 20121022, end: 20121022
  7. OMEPRAL [Concomitant]
     Dosage: 10MG PER DAY
     Route: 048
     Dates: start: 20121022, end: 20121028
  8. FUNGIZONE [Concomitant]
     Dosage: 200MG THREE TIMES PER DAY
     Route: 048
     Dates: start: 20121022
  9. FOSAMAC [Concomitant]
     Route: 048
     Dates: start: 20121022
  10. BREDININ [Concomitant]
     Dosage: 200MG PER DAY
     Route: 048
     Dates: start: 20121031
  11. CALONAL [Concomitant]
     Dosage: 400MG PER DAY
     Route: 048
     Dates: start: 20121022
  12. POSTERISAN [Concomitant]
     Dosage: .5IUAX TWICE PER DAY
     Route: 061
     Dates: start: 20121027, end: 20121029
  13. NOVORAPID [Concomitant]
     Dosage: 2IU THREE TIMES PER DAY
     Route: 058
     Dates: start: 20121030, end: 20121102
  14. SOLUMEDROL [Concomitant]
     Dosage: 450MG PER DAY
     Route: 042
     Dates: start: 20120726, end: 20120730
  15. SOLUMEDROL [Concomitant]
     Dosage: 400MG PER DAY
     Route: 042
     Dates: start: 20120731, end: 20120804
  16. SOLUMEDROL [Concomitant]
     Dosage: 350MG PER DAY
     Route: 042
     Dates: start: 20120805, end: 20120809
  17. MEDROL [Concomitant]
     Route: 048
     Dates: start: 20120810, end: 20120815
  18. MEDROL [Concomitant]
     Route: 048
     Dates: start: 20120816, end: 20120822
  19. MEDROL [Concomitant]
     Route: 048
     Dates: start: 20120823, end: 20120830
  20. BENAMBAX [Concomitant]
     Indication: ANTIFUNGAL PROPHYLAXIS
     Dosage: 300MG PER DAY
     Route: 042
     Dates: start: 20121009, end: 20121009

REACTIONS (2)
  - Liver function test abnormal [Recovered/Resolved]
  - Melaena [Recovering/Resolving]
